FAERS Safety Report 12991083 (Version 1)
Quarter: 2016Q4

REPORT INFORMATION
  Report Type: Spontaneous
  Country: US (occurrence: US)
  Receive Date: 20161201
  Receipt Date: 20161201
  Transmission Date: 20170207
  Serious: Yes (Other)
  Sender: FDA-Public Use
  Company Number: US-CLINIGEN GROUP PLC/ CLINIGEN HEALTHCARE LTD-E2B_00001771

PATIENT
  Sex: Female

DRUGS (8)
  1. NORMAL SALINE [Concomitant]
     Active Substance: SODIUM CHLORIDE
     Dosage: 1 LITER 1 DAY(S)
     Route: 065
     Dates: start: 19961120, end: 19961120
  2. ETHYOL [Suspect]
     Active Substance: AMIFOSTINE
     Indication: ADVERSE DRUG REACTION
     Dosage: 910 MG/M2 1 DAY(S)
     Route: 042
     Dates: start: 19961120, end: 19961120
  3. TAXOL [Concomitant]
     Active Substance: PACLITAXEL
     Dosage: 495 MG/M2 1 CYCLE(S)
     Route: 042
     Dates: start: 19961120, end: 19961120
  4. CARBOPLATIN. [Concomitant]
     Active Substance: CARBOPLATIN
     Dosage: 880 MG/M2 1 CYCLE(S)
     Route: 042
     Dates: start: 19961120, end: 19961120
  5. ZANTAC [Concomitant]
     Active Substance: RANITIDINE HYDROCHLORIDE
     Dosage: 50 MG 1 DAY(S)
     Route: 065
     Dates: start: 19961120, end: 19961120
  6. BENADRYL [Concomitant]
     Active Substance: DIPHENHYDRAMINE HYDROCHLORIDE
     Dosage: 50 MG 1 DAY(S)
     Route: 048
     Dates: start: 19961120, end: 19961120
  7. KYTRIL [Concomitant]
     Active Substance: GRANISETRON HYDROCHLORIDE
     Dosage: 10 MCG/KG 1 DAY(S)
     Route: 065
     Dates: start: 19961120, end: 19961120
  8. SOLU-MEDROL [Concomitant]
     Active Substance: METHYLPREDNISOLONE SODIUM SUCCINATE
     Dosage: 60 MG 1 DAY(S)
     Route: 042
     Dates: start: 19961120, end: 19961120

REACTIONS (4)
  - Hypokalaemia [Unknown]
  - Nausea [Recovering/Resolving]
  - Malaise [Unknown]
  - Vomiting [Unknown]

NARRATIVE: CASE EVENT DATE: 19961120
